FAERS Safety Report 5236740-4 (Version None)
Quarter: 2007Q1

REPORT INFORMATION
  Report Type: 
  Country: None (occurrence: None)
  Receive Date: 20061208
  Receipt Date: 20050407
  Transmission Date: 20070707
  Serious: Yes (Other)
  Sender: FDA-Public Use
  Company Number: 2005UW01167

PATIENT
  Age: 54 Year
  Sex: Female
  Weight: 104.7809 kg

DRUGS (3)
  1. CRESTOR [Suspect]
     Indication: HYPERLIPIDAEMIA
     Dosage: 5 MG DAILY PO
     Route: 048
     Dates: start: 20040819, end: 20041003
  2. HYZAAR [Concomitant]
  3. MULTI-VITAMINS [Concomitant]

REACTIONS (5)
  - ARTHRALGIA [None]
  - GAIT DISTURBANCE [None]
  - INFLUENZA LIKE ILLNESS [None]
  - MUSCLE SPASMS [None]
  - PAIN IN EXTREMITY [None]
